FAERS Safety Report 7962699-2 (Version None)
Quarter: 2011Q4

REPORT INFORMATION
  Report Type: 
  Country: None (occurrence: None)
  Receive Date: 20111207
  Receipt Date: 20111129
  Transmission Date: 20120403
  Serious: Yes (Disabling, Other)
  Sender: FDA-Public Use
  Company Number: BR-ABBOTT-10P-020-0634512-00

PATIENT
  Sex: Female
  Weight: 53 kg

DRUGS (17)
  1. SYNTHROID [Suspect]
     Dates: start: 20050101
  2. SYNTHROID [Suspect]
  3. SYNTHROID [Suspect]
  4. PANTOPRAZOLE [Concomitant]
     Indication: PROPHYLAXIS AGAINST GASTROINTESTINAL ULCER
     Route: 048
     Dates: start: 20101227
  5. OMEPRAZOLE [Concomitant]
     Indication: GASTRIC DISORDER
     Route: 048
     Dates: start: 20020101
  6. FLUOXETINE HYDROCHLORIDE [Concomitant]
     Indication: ANTIDEPRESSANT THERAPY
     Route: 048
  7. CLORANA [Concomitant]
     Indication: HYPERTENSION
     Route: 048
  8. TUBERCULINIUM [Concomitant]
     Indication: PRODUCT USED FOR UNKNOWN INDICATION
     Dosage: 5 DROPS ON SATURDAYS
     Route: 048
  9. RESURGIPLUS [Concomitant]
     Indication: PRODUCT USED FOR UNKNOWN INDICATION
  10. CEREBRUM [Concomitant]
     Indication: FATIGUE
     Route: 048
  11. SYNTHROID [Suspect]
     Indication: HYPERTHYROIDISM
     Route: 048
     Dates: start: 20100322
  12. COZAAR [Concomitant]
     Indication: HYPERTENSION
     Route: 048
  13. CLORANA [Concomitant]
     Indication: BLOOD PRESSURE
  14. ACETAMINOPHEN [Concomitant]
     Indication: PRODUCT USED FOR UNKNOWN INDICATION
  15. CALSTICUM [Concomitant]
     Indication: AFFECTIVE DISORDER
     Route: 048
  16. TENAVIT [Concomitant]
     Indication: VITAMIN SUPPLEMENTATION
     Route: 048
  17. HEPAR [Concomitant]
     Indication: LIVER DISORDER
     Route: 048

REACTIONS (21)
  - HYPOPHAGIA [None]
  - INFECTION [None]
  - BREAST CANCER [None]
  - VASCULAR OCCLUSION [None]
  - ABDOMINAL PAIN UPPER [None]
  - WEIGHT DECREASED [None]
  - ABASIA [None]
  - HYPOTENSION [None]
  - ABDOMINAL PAIN [None]
  - BONE PAIN [None]
  - HYPERHIDROSIS [None]
  - INCREASED UPPER AIRWAY SECRETION [None]
  - SOMNOLENCE [None]
  - BLOOD BILIRUBIN ABNORMAL [None]
  - BEDRIDDEN [None]
  - PYREXIA [None]
  - COUGH [None]
  - MUSCLE SPASMS [None]
  - DECREASED APPETITE [None]
  - DIARRHOEA [None]
  - BLOOD CHOLESTEROL INCREASED [None]
